FAERS Safety Report 25533889 (Version 4)
Quarter: 2025Q3

REPORT INFORMATION
  Report Type: Report from Study
  Country: US (occurrence: US)
  Receive Date: 20250709
  Receipt Date: 20250721
  Transmission Date: 20251020
  Serious: Yes (Other)
  Sender: SUNOVION
  Company Number: US-SUMITOMO PHARMA SWITZERLAND GMBH-2025SPA007830

PATIENT

DRUGS (10)
  1. ORGOVYX [Suspect]
     Active Substance: RELUGOLIX
     Indication: Prostate cancer
     Route: 048
     Dates: start: 20250615, end: 20250615
  2. ORGOVYX [Suspect]
     Active Substance: RELUGOLIX
     Route: 048
     Dates: start: 20250616
  3. ASPIRIN [Concomitant]
     Active Substance: ASPIRIN
     Route: 065
  4. ATENOLOL [Concomitant]
     Active Substance: ATENOLOL
     Route: 065
  5. CALCIUM\VITAMIN D [Concomitant]
     Active Substance: CALCIUM\VITAMIN D
     Route: 065
  6. CELEBREX [Concomitant]
     Active Substance: CELECOXIB
     Route: 065
  7. ERLEADA [Concomitant]
     Active Substance: APALUTAMIDE
     Route: 065
  8. MAGNESIUM [Concomitant]
     Active Substance: MAGNESIUM
     Route: 065
  9. TAMSULOSIN [Concomitant]
     Active Substance: TAMSULOSIN
     Route: 065
  10. VITAMIN D3 [Concomitant]
     Active Substance: CHOLECALCIFEROL
     Route: 065

REACTIONS (8)
  - Retinal detachment [Recovered/Resolved]
  - Diplopia [Recovered/Resolved]
  - Muscle spasms [Unknown]
  - Nasopharyngitis [Unknown]
  - Balance disorder [Unknown]
  - Hypersensitivity [Unknown]
  - Eye haemorrhage [Recovered/Resolved]
  - Fatigue [Unknown]
